FAERS Safety Report 9839401 (Version 1)
Quarter: 2014Q1

REPORT INFORMATION
  Report Type: Spontaneous
  Country: US (occurrence: US)
  Receive Date: 20140123
  Receipt Date: 20140123
  Transmission Date: 20141002
  Serious: Yes (Other)
  Sender: FDA-Public Use
  Company Number: US-AMGEN-USASP2014004221

PATIENT
  Age: 83 Year
  Sex: Male
  Weight: 64.4 kg

DRUGS (7)
  1. PROCRIT [Suspect]
     Indication: ANAEMIA
     Dosage: 40000 UNITS/ML, UNK
     Route: 058
     Dates: start: 2013
  2. BENICAR [Concomitant]
     Indication: HYPERTENSION
     Dosage: 40 MG, ONCE DAILY
     Route: 048
  3. ATENOLOL [Concomitant]
     Indication: HYPERTENSION
     Dosage: 50 MG, TWICE DAILY
     Route: 048
  4. AMLODIPINE [Concomitant]
     Indication: HYPERTENSION
     Dosage: 10 MG, ONCE DAILY
     Route: 048
  5. ALLOPURINOL [Concomitant]
     Indication: PROPHYLAXIS
     Dosage: 100 MG, ONCE DAILY
     Route: 048
  6. FLUTICASONE PROPIONATE [Concomitant]
     Indication: NASAL CONGESTION
     Dosage: 50 MUG, ONCE DAILY
     Route: 045
  7. TIMOLOL [Concomitant]
     Dosage: 0.5 %, ONCE DAILY
     Route: 047

REACTIONS (1)
  - Haemoglobin decreased [Unknown]
